FAERS Safety Report 17533381 (Version 1)
Quarter: 2020Q1

REPORT INFORMATION
  Report Type: Spontaneous
  Country: DE (occurrence: DE)
  Receive Date: 20200312
  Receipt Date: 20200312
  Transmission Date: 20200409
  Serious: Yes (Other)
  Sender: FDA-Public Use
  Company Number: DE-PFIZER INC-2020105338

PATIENT
  Sex: Male
  Weight: 4 kg

DRUGS (1)
  1. CYTOTEC [Suspect]
     Active Substance: MISOPROSTOL
     Indication: LABOUR INDUCTION
     Dosage: UNK
     Route: 064

REACTIONS (3)
  - Foetal heart rate decreased [Recovered/Resolved]
  - Foetal exposure during delivery [Unknown]
  - Cyanosis neonatal [Recovered/Resolved]

NARRATIVE: CASE EVENT DATE: 20160513
